FAERS Safety Report 25192322 (Version 1)
Quarter: 2025Q2

REPORT INFORMATION
  Report Type: Spontaneous
  Country: US (occurrence: None)
  Receive Date: 20250414
  Receipt Date: 20250414
  Transmission Date: 20250717
  Serious: Yes (Other)
  Sender: FDA-CTU
  Company Number: None

PATIENT
  Age: 22 Year
  Sex: Male
  Weight: 78.47 kg

DRUGS (1)
  1. HUMIRA [Suspect]
     Active Substance: ADALIMUMAB
     Indication: Colitis ulcerative
     Route: 058
     Dates: start: 20250131

REACTIONS (5)
  - Product formulation issue [None]
  - Injection site pain [None]
  - Injection site haemorrhage [None]
  - Hypersensitivity [None]
  - Injection site rash [None]

NARRATIVE: CASE EVENT DATE: 20250131
